FAERS Safety Report 8130316-7 (Version None)
Quarter: 2012Q1

REPORT INFORMATION
  Report Type: 
  Country: None (occurrence: None)
  Receive Date: 20120210
  Receipt Date: 20120206
  Transmission Date: 20120608
  Serious: Yes (Hospitalization)
  Sender: FDA-Public Use
  Company Number: PHHO2012CN000817

PATIENT
  Sex: Male
  Weight: 84 kg

DRUGS (4)
  1. AZITHROMYCIN [Concomitant]
     Indication: ANTIINFLAMMATORY THERAPY
     Dosage: 500 MG, QD
     Dates: start: 20120105, end: 20120107
  2. AFINITOR [Suspect]
     Dosage: 10 MG, QD
     Route: 048
     Dates: start: 20120129
  3. INDOMETHACIN [Concomitant]
     Dosage: 50 MG, UNK
     Route: 042
     Dates: start: 20120105, end: 20120105
  4. AFINITOR [Suspect]
     Indication: METASTATIC RENAL CELL CARCINOMA
     Dosage: 10 MG, QD
     Route: 048
     Dates: start: 20111209, end: 20120103

REACTIONS (2)
  - APPENDICITIS [None]
  - ANAL ABSCESS [None]
